FAERS Safety Report 9551513 (Version 1)
Quarter: 2013Q3

REPORT INFORMATION
  Report Type: Spontaneous
  Country: US (occurrence: None)
  Receive Date: 20130724
  Receipt Date: 20130724
  Transmission Date: 20140515
  Serious: Yes (Other)
  Sender: FDA-Public Use
  Company Number: PHEH2012US010985

PATIENT
  Age: 13 Year
  Sex: Female

DRUGS (2)
  1. GLEEVEC [Suspect]
  2. IRON [Concomitant]

REACTIONS (1)
  - Platelet count decreased [None]
